FAERS Safety Report 4472029-9 (Version None)
Quarter: 2004Q4

REPORT INFORMATION
  Report Type: 
  Country: None (occurrence: None)
  Receive Date: 20041007
  Receipt Date: 20040924
  Transmission Date: 20050328
  Serious: Yes (Other)
  Sender: FDA-Public Use
  Company Number: 2004015139

PATIENT
  Sex: Female
  Weight: 88.9 kg

DRUGS (5)
  1. EPANUTIN (PHENYTOIN SODIUM) [Suspect]
     Indication: EPILEPSY
     Dosage: 400 MG (200 MG, 2 IN 1 D), ORAL
     Route: 048
     Dates: start: 19900101
  2. FOLIC ACID [Concomitant]
  3. CEFRADINE (CEFRADINE) [Concomitant]
  4. HEPARIN [Concomitant]
  5. AMOXICILLIN [Concomitant]

REACTIONS (8)
  - ANTICONVULSANT DRUG LEVEL DECREASED [None]
  - CAESAREAN SECTION [None]
  - CONDITION AGGRAVATED [None]
  - CONVULSION [None]
  - DRUG EXPOSURE DURING PREGNANCY [None]
  - PREGNANCY [None]
  - PRURITUS [None]
  - URINARY TRACT INFECTION [None]
